FAERS Safety Report 10422509 (Version 3)
Quarter: 2014Q4

REPORT INFORMATION
  Report Type: Spontaneous
  Country: BE (occurrence: BE)
  Receive Date: 20140901
  Receipt Date: 20141001
  Transmission Date: 20150528
  Serious: Yes (Disabling, Other)
  Sender: FDA-Public Use
  Company Number: BE-ABBVIE-14K-013-1262598-00

PATIENT
  Age: 35 Year
  Sex: Male
  Weight: 78 kg

DRUGS (3)
  1. HUMIRA [Suspect]
     Active Substance: ADALIMUMAB
     Indication: PSORIASIS
     Route: 058
     Dates: start: 20140108, end: 20140115
  2. HUMIRA [Suspect]
     Active Substance: ADALIMUMAB
     Route: 058
     Dates: start: 20140115, end: 20140129
  3. HUMIRA [Suspect]
     Active Substance: ADALIMUMAB
     Route: 058
     Dates: start: 20140129, end: 20140618

REACTIONS (13)
  - Headache [Recovered/Resolved]
  - Sensory disturbance [Recovered/Resolved]
  - Vision blurred [Not Recovered/Not Resolved]
  - Visual evoked potentials abnormal [Unknown]
  - Psoriasis [Unknown]
  - Musculoskeletal stiffness [Recovered/Resolved]
  - Papilloedema [Not Recovered/Not Resolved]
  - Tinnitus [Recovered/Resolved]
  - Blood thyroid stimulating hormone increased [Unknown]
  - Suicidal ideation [Unknown]
  - Glare [Not Recovered/Not Resolved]
  - Eye pain [Not Recovered/Not Resolved]
  - Deafness [Recovered/Resolved]

NARRATIVE: CASE EVENT DATE: 201401
